FAERS Safety Report 10082930 (Version 1)
Quarter: 2014Q2

REPORT INFORMATION
  Report Type: Spontaneous
  Country: JP (occurrence: JP)
  Receive Date: 20140417
  Receipt Date: 20140417
  Transmission Date: 20141212
  Serious: No
  Sender: FDA-Public Use
  Company Number: JP-UCBSA-117528

PATIENT
  Age: 77 Year
  Sex: Female

DRUGS (5)
  1. E KEPPRA [Suspect]
     Indication: EPILEPSY
     Route: 048
     Dates: start: 20140228, end: 20140310
  2. PHENOBAL [Suspect]
     Dosage: DAILY DOSE: 80 MG
     Route: 048
     Dates: start: 20140218, end: 20140306
  3. TAKEPRON [Suspect]
     Dosage: DAILY DOSE: 15 MG
     Route: 048
     Dates: start: 20140218, end: 20140308
  4. XARELTO [Concomitant]
     Dosage: DAILY DOSE: 15 MG
     Route: 048
     Dates: start: 20140225
  5. AMLODIN [Concomitant]
     Dosage: DAILY DOSE: 5 MG
     Route: 048

REACTIONS (1)
  - White blood cell count decreased [Recovered/Resolved]
